FAERS Safety Report 7168851-0 (Version None)
Quarter: 2010Q4

REPORT INFORMATION
  Report Type: 
  Country: None (occurrence: None)
  Receive Date: 20101216
  Receipt Date: 20100308
  Transmission Date: 20110411
  Serious: No
  Sender: FDA-Public Use
  Company Number: US-AMGEN-KDL383984

PATIENT

DRUGS (20)
  1. ENBREL [Suspect]
     Indication: PRODUCT USED FOR UNKNOWN INDICATION
     Dosage: 50 MG, QWK
     Route: 058
     Dates: start: 20091125
  2. HYDROXYCHLOROQUINE SULFATE [Concomitant]
     Dosage: 400 MG, QD
     Dates: start: 20100217
  3. LEFLUNOMIDE [Concomitant]
     Dosage: 20 MG, QD
     Route: 048
     Dates: start: 20100217
  4. ERGOCALCIFEROL [Concomitant]
     Dosage: 1000 IU, BID
     Route: 048
     Dates: start: 20091014
  5. LEVOTHYROXINE SODIUM [Concomitant]
     Dosage: 50 A?G, QD
     Dates: start: 20090225
  6. CETIRIZINE HYDROCHLORIDE [Concomitant]
     Dosage: 10 MG, QD
  7. LEVOFLOXACIN [Concomitant]
     Dosage: 750 MG, QD
  8. FUROSEMIDE [Concomitant]
     Dosage: 40 MG, QD
     Route: 048
  9. RANITIDINE HYDROCHLORIDE [Concomitant]
     Dosage: 300 MG, QD
  10. TOPROL-XL [Concomitant]
     Dosage: 50 MG, QD
     Route: 048
  11. NIFEDIPINE [Concomitant]
     Dosage: 60 MG, QD
  12. OMEPRAZOLE [Concomitant]
     Dosage: 40 MG, BID
  13. METHYLPREDNISOLONE [Concomitant]
     Dosage: 4 MG, UNK
  14. CALCIUM CARBONATE [Concomitant]
     Dosage: 600 MG, BID
  15. METHYLCELLULOSE [Concomitant]
     Dosage: 500 MG, BID
  16. POTASSIUM CHLORIDE [Concomitant]
     Dosage: 20 MEQ, BID
     Route: 048
  17. MULTI-VITAMINS [Concomitant]
  18. SERTRALINE HYDROCHLORIDE [Concomitant]
     Dosage: 50 MG, BID
  19. LOPERAMIDE HYDROCHLORIDE [Concomitant]
     Dosage: 2 MG, QD
  20. FLAX SEED OIL [Concomitant]
     Dosage: .3 G, UNK
     Dates: start: 20090831

REACTIONS (3)
  - HAEMATOMA [None]
  - INJECTION SITE EXTRAVASATION [None]
  - INJECTION SITE PAIN [None]
